FAERS Safety Report 26038721 (Version 2)
Quarter: 2025Q4

REPORT INFORMATION
  Report Type: Report from Study
  Country: EU (occurrence: EU)
  Receive Date: 20251113
  Receipt Date: 20251120
  Transmission Date: 20260117
  Serious: Yes (Hospitalization)
  Sender: ABBVIE
  Company Number: EU-ABBVIE-6496567

PATIENT
  Age: 73 Year
  Sex: Female

DRUGS (3)
  1. FOSCARBIDOPA\FOSLEVODOPA [Suspect]
     Active Substance: FOSCARBIDOPA\FOSLEVODOPA
     Indication: Product used for unknown indication
     Dosage: FLOW RATE 1: 0.68ML/H: HIGH ?FLOW RATE 2 : 0.25ML/H; NIGHT?EXTRA DOSE: 0.30ML/H
     Route: 058
     Dates: start: 20250523
  2. CLOZAPINE [Concomitant]
     Active Substance: CLOZAPINE
     Indication: Persecutory delusion
     Dosage: 0.5 COMPRESS
     Route: 048
  3. CLOZAPINE [Concomitant]
     Active Substance: CLOZAPINE
     Indication: Persecutory delusion
     Dosage: 1.5 TABLET PER DAY
     Route: 048

REACTIONS (3)
  - Behaviour disorder [Not Recovered/Not Resolved]
  - Fear [Not Recovered/Not Resolved]
  - Persecutory delusion [Not Recovered/Not Resolved]

NARRATIVE: CASE EVENT DATE: 20250101
